FAERS Safety Report 7270357-5 (Version None)
Quarter: 2011Q1

REPORT INFORMATION
  Report Type: 
  Country: None (occurrence: None)
  Receive Date: 20110202
  Receipt Date: 20110127
  Transmission Date: 20110831
  Serious: Yes (Hospitalization)
  Sender: FDA-Public Use
  Company Number: JP-EISAI INC-E2090-01479-SPO-JP

PATIENT
  Age: 66 Year
  Sex: Male

DRUGS (4)
  1. OLMETEC [Concomitant]
  2. EXCEGRAN [Suspect]
     Dosage: 200 MG DAILY
     Route: 048
  3. SELENICA-R [Concomitant]
  4. CONIEL [Concomitant]

REACTIONS (1)
  - INTERSTITIAL LUNG DISEASE [None]
